FAERS Safety Report 12469050 (Version 2)
Quarter: 2016Q3

REPORT INFORMATION
  Report Type: Report from Study
  Country: AR (occurrence: AR)
  Receive Date: 20160615
  Receipt Date: 20160729
  Transmission Date: 20161109
  Serious: Yes (Other)
  Sender: FDA-Public Use
  Company Number: AR-ABBVIE-16K-007-1651430-00

PATIENT
  Age: 56 Year
  Sex: Female

DRUGS (1)
  1. HUMIRA [Suspect]
     Active Substance: ADALIMUMAB
     Indication: RHEUMATOID ARTHRITIS
     Route: 058
     Dates: start: 20131201

REACTIONS (3)
  - Nodule [Not Recovered/Not Resolved]
  - Dry eye [Unknown]
  - Benign neoplasm [Recovered/Resolved]

NARRATIVE: CASE EVENT DATE: 201312
